FAERS Safety Report 7535949-4 (Version None)
Quarter: 2011Q2

REPORT INFORMATION
  Report Type: 
  Country: None (occurrence: None)
  Receive Date: 20110524
  Receipt Date: 20110412
  Transmission Date: 20111010
  Serious: Yes (Other)
  Sender: FDA-Public Use
  Company Number: 031083

PATIENT
  Sex: Female

DRUGS (5)
  1. CIMZIA [Suspect]
  2. MULTIVITAMIN /01229101/ [Concomitant]
  3. VITAMIN B12 /00056201/ [Concomitant]
  4. CIMZIA [Suspect]
     Indication: CROHN'S DISEASE
     Dosage: (400 MG 1X/2 WEEKS, AT WEEK 0, 2, AND 4. SUBCUTANEOUS) ; (400 MG 1X/4 WEEKS SUBCUTANEOUS)
     Route: 058
     Dates: start: 20101130
  5. CIMZIA [Suspect]
     Indication: CROHN'S DISEASE
     Dosage: (400 MG 1X/2 WEEKS, AT WEEK 0, 2, AND 4. SUBCUTANEOUS) ; (400 MG 1X/4 WEEKS SUBCUTANEOUS)
     Route: 058
     Dates: start: 20101005, end: 20101102

REACTIONS (2)
  - HYPOAESTHESIA [None]
  - PARAESTHESIA [None]
